FAERS Safety Report 5344346-1 (Version None)
Quarter: 2007Q2

REPORT INFORMATION
  Report Type: 
  Country: None (occurrence: None)
  Receive Date: 20070604
  Receipt Date: 20070521
  Transmission Date: 20071010
  Serious: Yes (Hospitalization)
  Sender: FDA-Public Use
  Company Number: FR-SHR-FR-2007-019100

PATIENT
  Age: 38 Year
  Sex: Female

DRUGS (1)
  1. BETASERON [Suspect]
     Indication: MULTIPLE SCLEROSIS
     Dosage: 250 A?G, EVERY 2D
     Route: 058
     Dates: start: 20070101

REACTIONS (6)
  - DERMATITIS [None]
  - FALL [None]
  - LEUKOPENIA [None]
  - MUSCLE SPASMS [None]
  - NEUTROPENIA [None]
  - TRANSAMINASES INCREASED [None]
